FAERS Safety Report 10507565 (Version 4)
Quarter: 2015Q2

REPORT INFORMATION
  Report Type: Spontaneous
  Country: US (occurrence: US)
  Receive Date: 20141009
  Receipt Date: 20150402
  Transmission Date: 20150821
  Serious: No
  Sender: FDA-Public Use
  Company Number: US-PFIZER INC-2014275782

PATIENT
  Age: 76 Year
  Sex: Female
  Weight: 82 kg

DRUGS (8)
  1. LYRICA [Suspect]
     Active Substance: PREGABALIN
     Indication: NEUROPATHY PERIPHERAL
     Dosage: 150 MG, 3X/DAY
     Route: 048
  2. TALOPRAM [Concomitant]
     Indication: PANIC ATTACK
     Dosage: 60 MG, 1X/DAY
     Route: 048
  3. LISINOPRIL. [Concomitant]
     Active Substance: LISINOPRIL
     Dosage: 10 MG, AS NEEDED (1X/DAY)
  4. NITROFURANTOIN. [Concomitant]
     Active Substance: NITROFURANTOIN
     Indication: BLADDER DISORDER
     Dosage: 100 MG, 1X/DAY
     Route: 048
  5. LYRICA [Suspect]
     Active Substance: PREGABALIN
     Indication: NERVE COMPRESSION
  6. LYRICA [Suspect]
     Active Substance: PREGABALIN
     Indication: FIBROMYALGIA
     Dosage: 150 MG, 2X/DAY
     Route: 048
  7. LEVOTHYROXINE [Concomitant]
     Active Substance: LEVOTHYROXINE
     Indication: BLOOD THYROID STIMULATING HORMONE INCREASED
     Dosage: 200 UG, SINGLE
  8. HYDROCODONE [Concomitant]
     Active Substance: HYDROCODONE
     Indication: PAIN
     Dosage: UNK, AS NEEDED
     Route: 048

REACTIONS (6)
  - Pain in extremity [Unknown]
  - Pain [Not Recovered/Not Resolved]
  - Limb discomfort [Unknown]
  - Product use issue [Unknown]
  - Burning sensation [Unknown]
  - Body height decreased [Unknown]

NARRATIVE: CASE EVENT DATE: 20140701
